FAERS Safety Report 7029281-5 (Version None)
Quarter: 2010Q4

REPORT INFORMATION
  Report Type: 
  Country: None (occurrence: None)
  Receive Date: 20101005
  Receipt Date: 20100928
  Transmission Date: 20110411
  Serious: Yes (Death)
  Sender: FDA-Public Use
  Company Number: US-GILEAD-2010-0032187

PATIENT
  Sex: Female

DRUGS (13)
  1. LETAIRIS [Suspect]
     Indication: PULMONARY ARTERIAL HYPERTENSION
     Route: 048
     Dates: start: 20090707, end: 20100807
  2. COUMADIN [Concomitant]
  3. TOPROL-XL [Concomitant]
  4. CLARINEX [Concomitant]
  5. ZOLOFT [Concomitant]
  6. GLIPIZIDE [Concomitant]
  7. NEXIUM [Concomitant]
  8. NEURONTIN [Concomitant]
  9. DEMEROL [Concomitant]
  10. DOCUSATE SODIUM [Concomitant]
  11. ALLOPURINOL [Concomitant]
  12. RENAL MVI [Concomitant]
  13. IRON [Concomitant]

REACTIONS (1)
  - DEATH [None]
